FAERS Safety Report 8109063 (Version 4)
Quarter: 2012Q4

REPORT INFORMATION
  Report Type: 
  Country: US (occurrence: US)
  Receive Date: 20110826
  Receipt Date: 20121025
  Transmission Date: 20130627
  Serious: Yes (Death, Hospitalization, Other)
  Sender: FDA-Public Use
  Company Number: PHEH2011US01768

PATIENT
  Age: 64 Year
  Sex: Female
  Weight: 45 kg

DRUGS (8)
  1. TOBI [Suspect]
     Indication: BRONCHIECTASIS
     Dates: start: 201106
  2. TOBI [Suspect]
     Dosage: 300 mg, BID
     Dates: start: 20110810, end: 20110816
  3. BROVANA [Concomitant]
  4. SPIRIVA ^BOEHRINGER INGELHEIM^ [Concomitant]
  5. SYNTHROID [Concomitant]
  6. NOXAFIL [Concomitant]
  7. FENTANYL [Concomitant]
  8. ALVESCO [Concomitant]

REACTIONS (10)
  - Death [Fatal]
  - Fungal infection [Not Recovered/Not Resolved]
  - Bronchospasm [Recovered/Resolved]
  - Oxygen saturation decreased [Unknown]
  - Candidiasis [Unknown]
  - Emphysema [Recovered/Resolved]
  - Chest discomfort [Unknown]
  - Pulmonary congestion [Unknown]
  - Tooth disorder [Unknown]
  - Device malfunction [Unknown]
